FAERS Safety Report 4532702-0 (Version None)
Quarter: 2004Q4

REPORT INFORMATION
  Report Type: 
  Country: None (occurrence: None)
  Receive Date: 20041221
  Receipt Date: 20041206
  Transmission Date: 20050328
  Serious: Yes (Hospitalization, Other)
  Sender: FDA-Public Use
  Company Number: GB-JNJFOC-20041201333

PATIENT
  Sex: Female
  Weight: 74 kg

DRUGS (6)
  1. REMICADE [Suspect]
     Indication: RHEUMATOID ARTHRITIS
     Route: 042
  2. METHOTREXATE [Concomitant]
  3. TRAMADOL HCL [Concomitant]
  4. RAMIPRIL [Concomitant]
  5. ALBUTEROL [Concomitant]
  6. BECLAZONE [Concomitant]

REACTIONS (2)
  - RESPIRATORY DISORDER [None]
  - TUBERCULOSIS [None]
